FAERS Safety Report 14503189 (Version 1)
Quarter: 2018Q1

REPORT INFORMATION
  Report Type: Spontaneous
  Country: US (occurrence: US)
  Receive Date: 20180208
  Receipt Date: 20180208
  Transmission Date: 20180509
  Serious: Yes (Hospitalization)
  Sender: FDA-Public Use
  Company Number: US-PFIZER INC-2018055594

PATIENT
  Age: 56 Year
  Sex: Male
  Weight: 98.43 kg

DRUGS (1)
  1. NEURONTIN [Suspect]
     Active Substance: GABAPENTIN
     Indication: POLYNEUROPATHY ALCOHOLIC
     Dosage: UNK, 2X/DAY
     Dates: start: 20170801

REACTIONS (2)
  - Gait inability [Recovering/Resolving]
  - Drug ineffective for unapproved indication [Recovering/Resolving]

NARRATIVE: CASE EVENT DATE: 20170801
